FAERS Safety Report 4591548-8 (Version None)
Quarter: 2005Q1

REPORT INFORMATION
  Report Type: 
  Country: None (occurrence: None)
  Receive Date: 20050222
  Receipt Date: 20050207
  Transmission Date: 20050727
  Serious: Yes (Life-Threatening, Hospitalization)
  Sender: FDA-Public Use
  Company Number: 2005026487

PATIENT
  Sex: Female

DRUGS (2)
  1. VIRACEPT [Suspect]
     Indication: HIV TEST POSITIVE
     Dosage: 2500 MG (1250 MG, 2 IN 1 D), ORAL
     Route: 048
     Dates: start: 20030702
  2. LAMIVUDINE AND ZIDOVUDINE [Suspect]
     Indication: HIV TEST POSITIVE
     Dosage: 900 MG (450 MG, 2 IN 1 D), ORAL
     Route: 048
     Dates: start: 20030702

REACTIONS (4)
  - ABORTION INDUCED [None]
  - CONGENITAL ANOMALY [None]
  - DRUG EXPOSURE DURING PREGNANCY [None]
  - OLIGOHYDRAMNIOS [None]
